FAERS Safety Report 11458008 (Version 1)
Quarter: 2015Q3

REPORT INFORMATION
  Report Type: Spontaneous
  Country: US (occurrence: US)
  Receive Date: 20150904
  Receipt Date: 20150904
  Transmission Date: 20151125
  Serious: No
  Sender: FDA-Public Use
  Company Number: US-BIOGENIDEC-2015BI117496

PATIENT
  Age: 55 Year
  Sex: Female

DRUGS (1)
  1. TYSABRI [Suspect]
     Active Substance: NATALIZUMAB
     Indication: MULTIPLE SCLEROSIS
     Route: 042
     Dates: start: 20121129

REACTIONS (6)
  - Balance disorder [Not Recovered/Not Resolved]
  - Fracture [Not Recovered/Not Resolved]
  - Vertigo [Unknown]
  - Infection [Unknown]
  - Anxiety [Not Recovered/Not Resolved]
  - Surgery [Unknown]

NARRATIVE: CASE EVENT DATE: 201502
